FAERS Safety Report 9586418 (Version 1)
Quarter: 2013Q4

REPORT INFORMATION
  Report Type: Spontaneous
  Country: US (occurrence: None)
  Receive Date: 20131001
  Receipt Date: 20131001
  Transmission Date: 20140711
  Serious: Yes (Hospitalization)
  Sender: FDA-Public Use
  Company Number: UTC-037829

PATIENT
  Age: 88 Year
  Sex: Female
  Weight: 68.1 kg

DRUGS (2)
  1. REMODULIN [Suspect]
     Indication: PULMONARY ARTERIAL HYPERTENSION
     Dosage: 50.4 UG/KG (0.035 UG/KG,1 IN 1 MIN),SUBCUTANEOUS
     Route: 058
     Dates: start: 20130409, end: 201308
  2. TRACLEER (BOSENTAN) [Concomitant]

REACTIONS (3)
  - Infusion site infection [None]
  - Infusion site erythema [None]
  - Infusion site induration [None]
